FAERS Safety Report 7631993-7 (Version None)
Quarter: 2011Q3

REPORT INFORMATION
  Report Type: 
  Country: None (occurrence: None)
  Receive Date: 20110725
  Receipt Date: 20110520
  Transmission Date: 20111222
  Serious: Yes (Other)
  Sender: FDA-Public Use
  Company Number: US-BRISTOL-MYERS SQUIBB COMPANY-15764954

PATIENT
  Age: 62 Year
  Sex: Female

DRUGS (8)
  1. POTASSIUM [Concomitant]
  2. LISINOPRIL [Concomitant]
  3. FUROSEMIDE [Concomitant]
  4. ASPIRIN [Concomitant]
  5. WARFARIN SODIUM [Suspect]
  6. FLECAINIDE ACETATE [Concomitant]
  7. COUMADIN [Suspect]
     Indication: BLUE TOE SYNDROME
  8. SINGULAIR [Concomitant]

REACTIONS (3)
  - RASH [None]
  - BLUE TOE SYNDROME [None]
  - PAIN [None]
